FAERS Safety Report 9444063 (Version 1)
Quarter: 2013Q3

REPORT INFORMATION
  Report Type: Spontaneous
  Country: US (occurrence: None)
  Receive Date: 20130806
  Receipt Date: 20130806
  Transmission Date: 20140515
  Serious: No
  Sender: FDA-Public Use
  Company Number: None

PATIENT
  Age: 79 Year
  Sex: Female

DRUGS (1)
  1. SUTENT 25MG PFIZER [Suspect]
     Indication: RENAL NEOPLASM
     Dosage: 25MG  DAILY FOR 4 WEEKS, OFF 2
     Route: 048
     Dates: start: 20110719

REACTIONS (4)
  - Tremor [None]
  - Muscle spasms [None]
  - Pain in extremity [None]
  - Musculoskeletal pain [None]
